FAERS Safety Report 24616430 (Version 1)
Quarter: 2024Q4

REPORT INFORMATION
  Report Type: Report from Study
  Country: US (occurrence: US)
  Receive Date: 20241114
  Receipt Date: 20241114
  Transmission Date: 20250114
  Serious: Yes (Death)
  Sender: ABBVIE
  Company Number: US-ABBVIE-6003175

PATIENT
  Age: 82 Year
  Sex: Male

DRUGS (3)
  1. VENCLEXTA [Suspect]
     Active Substance: VENETOCLAX
     Indication: Acute myeloid leukaemia
     Route: 048
     Dates: start: 20210609, end: 202410
  2. NUBEQA [Concomitant]
     Active Substance: DAROLUTAMIDE
     Indication: Acute myeloid leukaemia
     Dates: start: 20230216
  3. ORGOVYX [Concomitant]
     Active Substance: RELUGOLIX
     Indication: Acute myeloid leukaemia
     Dates: start: 20240214

REACTIONS (1)
  - Death [Fatal]

NARRATIVE: CASE EVENT DATE: 20241026
